FAERS Safety Report 12002636 (Version 1)
Quarter: 2016Q1

REPORT INFORMATION
  Report Type: Report from Study
  Country: US (occurrence: US)
  Receive Date: 20160204
  Receipt Date: 20160204
  Transmission Date: 20160526
  Serious: Yes (Other)
  Sender: FDA-Public Use
  Company Number: US-ABBVIE-15K-163-1425601-00

PATIENT
  Age: 51 Year
  Sex: Female

DRUGS (2)
  1. METHOTREXATE [Concomitant]
     Active Substance: METHOTREXATE
     Indication: PRODUCT USED FOR UNKNOWN INDICATION
  2. HUMIRA [Suspect]
     Active Substance: ADALIMUMAB
     Indication: RHEUMATOID ARTHRITIS
     Route: 058
     Dates: start: 20150113

REACTIONS (16)
  - Adhesion [Unknown]
  - Peripheral swelling [Unknown]
  - Swelling [Not Recovered/Not Resolved]
  - Neck surgery [Unknown]
  - Asthenia [Unknown]
  - Post-traumatic neck syndrome [Unknown]
  - Arthralgia [Not Recovered/Not Resolved]
  - Sensation of foreign body [Unknown]
  - Feeling abnormal [Unknown]
  - Crying [Unknown]
  - Pain in extremity [Unknown]
  - Spinal column injury [Unknown]
  - Drug ineffective [Unknown]
  - Fatigue [Unknown]
  - Road traffic accident [Unknown]
  - Concussion [Unknown]

NARRATIVE: CASE EVENT DATE: 2015
